FAERS Safety Report 5718545-0 (Version None)
Quarter: 2008Q2

REPORT INFORMATION
  Report Type: 
  Country: None (occurrence: None)
  Receive Date: 20080425
  Receipt Date: 20080418
  Transmission Date: 20081010
  Serious: Yes (Other)
  Sender: FDA-Public Use
  Company Number: PHBS2008US04178

PATIENT
  Age: 30 Year
  Sex: Female

DRUGS (5)
  1. CYCLOSPORINE [Suspect]
     Indication: COLITIS ULCERATIVE
     Dosage: 220 MG/D
     Route: 042
  2. CYCLOSPORINE [Suspect]
     Dosage: 500 MG/D
     Route: 048
  3. HYDROCORTISONE [Concomitant]
     Dosage: 160 MG/D
     Route: 048
  4. HYDROCORTISONE [Concomitant]
     Dosage: 200 MG/D
     Route: 042
  5. HYDROCORTISONE [Concomitant]
     Dosage: 160 MG/D
     Route: 048

REACTIONS (2)
  - ABORTION SPONTANEOUS [None]
  - DRUG EXPOSURE DURING PREGNANCY [None]
